FAERS Safety Report 4954725-X (Version None)
Quarter: 2006Q1

REPORT INFORMATION
  Report Type: 
  Country: None (occurrence: None)
  Receive Date: 20060322
  Receipt Date: 20060315
  Transmission Date: 20060701
  Serious: Yes (Life-Threatening)
  Sender: FDA-Public Use
  Company Number: 200610259BFR

PATIENT
  Age: 68 Year
  Sex: Male

DRUGS (11)
  1. CIPROFLAXACIN [Suspect]
     Indication: LUNG INFECTION PSEUDOMONAL
     Dosage: SEE IMAGE
     Route: 042
     Dates: start: 20040624, end: 20040701
  2. CIPROFLAXACIN [Suspect]
     Indication: LUNG INFECTION PSEUDOMONAL
     Dosage: SEE IMAGE
     Route: 042
     Dates: start: 20040726, end: 20040818
  3. TIENAM [Suspect]
     Indication: LUNG INFECTION PSEUDOMONAL
     Dosage: SEE IMAGE
     Route: 042
     Dates: start: 20040624, end: 20040701
  4. TIENAM [Suspect]
     Indication: LUNG INFECTION PSEUDOMONAL
     Dosage: SEE IMAGE
     Route: 042
     Dates: start: 20040726, end: 20040818
  5. DEPAKENE [Concomitant]
  6. HIDROXIZIN [Concomitant]
  7. ARICEPT [Concomitant]
  8. SEROPRAM [Concomitant]
  9. CREON [Concomitant]
  10. ROCEPHIN [Concomitant]
  11. ERYTHROMYCIN [Concomitant]

REACTIONS (13)
  - AORTIC ANEURYSM [None]
  - AORTIC THROMBOSIS [None]
  - COGNITIVE DISORDER [None]
  - CULTURE URINE POSITIVE [None]
  - DEHYDRATION [None]
  - DISEASE RECURRENCE [None]
  - FUNGAL INFECTION [None]
  - GENERAL PHYSICAL HEALTH DETERIORATION [None]
  - LUNG INFECTION PSEUDOMONAL [None]
  - OLIGURIA [None]
  - PATHOGEN RESISTANCE [None]
  - RENAL FAILURE ACUTE [None]
  - RESPIRATORY DISORDER [None]
